FAERS Safety Report 6231399-1 (Version None)
Quarter: 2009Q2

REPORT INFORMATION
  Report Type: 
  Country: None (occurrence: None)
  Receive Date: 20090616
  Receipt Date: 20090612
  Transmission Date: 20091009
  Serious: Yes (Death)
  Sender: FDA-Public Use
  Company Number: CN-WYE-H09674509

PATIENT
  Sex: Male
  Weight: 85 kg

DRUGS (3)
  1. TEMSIROLIMUS [Suspect]
     Indication: RENAL CELL CARCINOMA
     Route: 042
     Dates: start: 20090519, end: 20090527
  2. TEMSIROLIMUS [Suspect]
     Dosage: UNKNOWN DOSE
     Route: 042
     Dates: start: 20080711, end: 20090518
  3. PREDNISONE ACETATE [Concomitant]
     Indication: INTERSTITIAL LUNG DISEASE
     Dosage: UNSPECIFIED TABLET FORM
     Route: 048
     Dates: start: 20090318

REACTIONS (1)
  - DEATH [None]
